FAERS Safety Report 25500118 (Version 1)
Quarter: 2025Q2

REPORT INFORMATION
  Report Type: Spontaneous
  Country: US (occurrence: None)
  Receive Date: 20250628
  Receipt Date: 20250628
  Transmission Date: 20250717
  Serious: Yes (Hospitalization)
  Sender: FDA-CTU
  Company Number: None

PATIENT
  Age: 41 Year
  Sex: Female
  Weight: 79.65 kg

DRUGS (5)
  1. CHOLINE\INOSITOL\METHIONINE\METHYLCOBALAMIN\TIRZEPATIDE [Suspect]
     Indication: Weight decreased
     Route: 058
     Dates: start: 20250621, end: 20250621
  2. CHOLINE CHLORIDE [Suspect]
     Active Substance: CHOLINE CHLORIDE
  3. INOSITOL [Suspect]
     Active Substance: INOSITOL
  4. METHIONINE [Suspect]
     Active Substance: METHIONINE
  5. METHYLCOBALAMIN [Suspect]
     Active Substance: METHYLCOBALAMIN

REACTIONS (1)
  - Drug hypersensitivity [None]

NARRATIVE: CASE EVENT DATE: 20250621
